FAERS Safety Report 5579395-1 (Version None)
Quarter: 2008Q1

REPORT INFORMATION
  Report Type: 
  Country: None (occurrence: None)
  Receive Date: 20080102
  Receipt Date: 20071225
  Transmission Date: 20080703
  Serious: Yes (Life-Threatening, Hospitalization)
  Sender: FDA-Public Use
  Company Number: JP-BAYER-JP-SHR-03-011210

PATIENT
  Age: 35 Year
  Sex: Female
  Weight: 51 kg

DRUGS (5)
  1. BETASERON [Suspect]
     Indication: RELAPSING-REMITTING MULTIPLE SCLEROSIS
     Dosage: TOTAL DAILY DOSE: 8 MIU
     Route: 058
     Dates: start: 20030423, end: 20030524
  2. PREDNISOLONE [Concomitant]
     Indication: RELAPSING-REMITTING MULTIPLE SCLEROSIS
     Route: 048
     Dates: start: 20030406, end: 20030517
  3. GASTER [Concomitant]
     Indication: PROPHYLAXIS AGAINST GASTROINTESTINAL ULCER
     Dosage: TOTAL DAILY DOSE: 40 MG
     Route: 048
     Dates: start: 20030412, end: 20030524
  4. MAGNESIUM OXIDE [Concomitant]
     Indication: CONSTIPATION PROPHYLAXIS
     Dosage: TOTAL DAILY DOSE: 1.98 G
     Route: 048
     Dates: start: 20030401, end: 20030524
  5. LAXOBERON [Concomitant]
     Route: 048
     Dates: start: 20030409

REACTIONS (2)
  - PNEUMONIA ASPIRATION [None]
  - STATUS EPILEPTICUS [None]
